FAERS Safety Report 15612142 (Version 2)
Quarter: 2019Q1

REPORT INFORMATION
  Report Type: Spontaneous
  Country: US (occurrence: US)
  Receive Date: 20181113
  Receipt Date: 20190312
  Transmission Date: 20190417
  Serious: No
  Sender: FDA-Public Use
  Company Number: US-GLAXOSMITHKLINE-US2018199534

PATIENT
  Age: 32 Year
  Sex: Female

DRUGS (1)
  1. VENTOLIN HFA [Suspect]
     Active Substance: ALBUTEROL SULFATE
     Indication: ASTHMA
     Dosage: 2 PUFF(S), PRN
     Route: 055

REACTIONS (6)
  - Drug ineffective [Unknown]
  - Product dose omission [Unknown]
  - Wrong technique in product usage process [Unknown]
  - Exposure during pregnancy [Unknown]
  - Inhalation therapy [Unknown]
  - Wrong technique in device usage process [Unknown]
